FAERS Safety Report 26176510 (Version 1)
Quarter: 2025Q4

REPORT INFORMATION
  Report Type: Spontaneous
  Country: US (occurrence: US)
  Receive Date: 20251218
  Receipt Date: 20251218
  Transmission Date: 20260117
  Serious: Yes (Other)
  Sender: NOVO NORDISK
  Company Number: US-NOVOPROD-1583830

PATIENT
  Age: 63 Year
  Sex: Female
  Weight: 59.41 kg

DRUGS (2)
  1. OZEMPIC [Suspect]
     Active Substance: SEMAGLUTIDE
     Indication: Blood glucose increased
  2. OZEMPIC [Suspect]
     Active Substance: SEMAGLUTIDE
     Indication: Type 2 diabetes mellitus
     Dosage: 0.25 MG ONCE WEELY
     Route: 058
     Dates: start: 20251107, end: 20251114

REACTIONS (10)
  - Heart rate increased [Not Recovered/Not Resolved]
  - Blood potassium decreased [Unknown]
  - Blood lactic acid increased [Unknown]
  - Body temperature increased [Unknown]
  - Sinus tachycardia [Unknown]
  - Heart rate increased [Unknown]
  - Heart rate increased [Unknown]
  - Heart rate increased [Unknown]
  - Abdominal distension [Recovered/Resolved]
  - Nausea [Recovered/Resolved]

NARRATIVE: CASE EVENT DATE: 20251123
